FAERS Safety Report 19733058 (Version 2)
Quarter: 2021Q3

REPORT INFORMATION
  Report Type: Spontaneous
  Country: US (occurrence: US)
  Receive Date: 20210823
  Receipt Date: 20210830
  Transmission Date: 20211014
  Serious: Yes (Other)
  Sender: FDA-Public Use
  Company Number: US-SA-2021SA270137

PATIENT
  Age: 37 Year
  Sex: Female

DRUGS (3)
  1. HYDROCORTISONE SALT NOT SPECIFIED [Suspect]
     Active Substance: HYDROCORTISONE
     Indication: RASH
     Dosage: SELF ADMINSTERED
     Route: 030
  2. CORTICOSTEROID NOS [Suspect]
     Active Substance: CORTICOSTEROID NOS
     Dosage: UNK
     Route: 048
  3. SOMATROPINE [Suspect]
     Active Substance: SOMATROPIN

REACTIONS (6)
  - Mycobacterium chelonae infection [Recovering/Resolving]
  - Neutrophilic panniculitis [Recovering/Resolving]
  - Rash [Recovering/Resolving]
  - Pain [Recovering/Resolving]
  - Swelling [Recovering/Resolving]
  - Erythema [Recovering/Resolving]
